FAERS Safety Report 16779547 (Version 1)
Quarter: 2019Q3

REPORT INFORMATION
  Report Type: Spontaneous
  Country: FR (occurrence: FR)
  Receive Date: 20190906
  Receipt Date: 20190906
  Transmission Date: 20191005
  Serious: Yes (Other)
  Sender: FDA-Public Use
  Company Number: FR-ACCORD-153798

PATIENT
  Age: 80 Year
  Sex: Male
  Weight: 72 kg

DRUGS (3)
  1. PRAVASTATIN. [Suspect]
     Active Substance: PRAVASTATIN
     Indication: PROPHYLAXIS
     Route: 048
     Dates: end: 20190722
  2. ALFUZOSIN [Suspect]
     Active Substance: ALFUZOSIN
     Indication: BENIGN PROSTATIC HYPERPLASIA
     Route: 048
     Dates: end: 20190722
  3. DAFALGAN [Suspect]
     Active Substance: ACETAMINOPHEN
     Indication: PAIN
     Route: 048
     Dates: start: 20190708, end: 20190722

REACTIONS (2)
  - Cholestasis [Recovering/Resolving]
  - Cell death [Recovering/Resolving]

NARRATIVE: CASE EVENT DATE: 20190717
